FAERS Safety Report 6486865-0 (Version None)
Quarter: 2009Q4

REPORT INFORMATION
  Report Type: 
  Country: None (occurrence: None)
  Receive Date: 20091210
  Receipt Date: 20091109
  Transmission Date: 20100525
  Serious: No
  Sender: FDA-Public Use
  Company Number: US-BAYER-200939119NA

PATIENT
  Age: 67 Year
  Sex: Female

DRUGS (1)
  1. CLIMARA PRO [Suspect]
     Indication: HOT FLUSH
     Dosage: 0.045/0.015MG/DAY
     Dates: start: 20091105

REACTIONS (2)
  - APPLICATION SITE RASH [None]
  - SKIN DISCOLOURATION [None]
